FAERS Safety Report 14368565 (Version 1)
Quarter: 2018Q1

REPORT INFORMATION
  Report Type: Report from Study
  Country: US (occurrence: US)
  Receive Date: 20180109
  Receipt Date: 20180109
  Transmission Date: 20180509
  Serious: Yes (Hospitalization)
  Sender: FDA-Public Use
  Company Number: US-ACTELION-A-US2016-147459

PATIENT
  Age: 42 Year
  Sex: Female

DRUGS (2)
  1. VELETRI [Suspect]
     Active Substance: EPOPROSTENOL
     Indication: PULMONARY ARTERIAL HYPERTENSION
     Dosage: 67.5 NG/KG, PER MIN
     Route: 042
     Dates: start: 20100930
  2. OPSUMIT [Suspect]
     Active Substance: MACITENTAN
     Indication: PULMONARY ARTERIAL HYPERTENSION
     Dosage: 10 MG, UNK
     Route: 048
     Dates: start: 20160220

REACTIONS (7)
  - Tinnitus [Unknown]
  - Catheter placement [Unknown]
  - Device damage [Unknown]
  - Headache [Unknown]
  - Respiratory tract infection [Unknown]
  - Influenza [Unknown]
  - Pyrexia [Unknown]
